FAERS Safety Report 9844096 (Version 2)
Quarter: 2014Q1

REPORT INFORMATION
  Report Type: Spontaneous
  Country: PL (occurrence: PL)
  Receive Date: 20140127
  Receipt Date: 20140212
  Transmission Date: 20141002
  Serious: Yes (Other)
  Sender: FDA-Public Use
  Company Number: CHNY2014PL000582

PATIENT
  Age: 40 Year
  Sex: Female

DRUGS (11)
  1. DICLOFENAC [Suspect]
     Indication: ARTHRALGIA
     Dosage: 75 MG, BID
     Route: 048
  2. DICLOFENAC [Suspect]
     Dosage: 100 MG, DAILY
     Route: 048
  3. DICLOFENAC [Suspect]
     Dosage: 50 MG, DAILY
     Route: 048
  4. IBUPROFEN [Concomitant]
     Indication: PAIN
     Dosage: 200 MG, TID
  5. IBUPROFEN [Concomitant]
     Dosage: 200 MG, QID
  6. IBUPROFEN [Concomitant]
     Dosage: 400 MG, QD
  7. VITAMIN D [Concomitant]
     Dosage: 800 U, UNK
  8. FOLIC ACID [Concomitant]
     Dosage: 15 MG, ONCE WEEKLY
  9. CALCIUM [Concomitant]
     Dosage: 1000 MG, UNK
  10. DICLOFENAC [Concomitant]
     Route: 061
  11. KETOPROFEN [Concomitant]
     Indication: PAIN
     Route: 065

REACTIONS (18)
  - Gastrointestinal disorder [Unknown]
  - Gastrointestinal erosion [Unknown]
  - Hypercholesterolaemia [Unknown]
  - High density lipoprotein decreased [Unknown]
  - Low density lipoprotein increased [Unknown]
  - Rheumatoid arthritis [Recovering/Resolving]
  - Hypertension [Unknown]
  - Deficiency anaemia [Unknown]
  - Synovitis [Recovering/Resolving]
  - Tendon disorder [Recovering/Resolving]
  - Occult blood positive [Unknown]
  - Oedema [Recovering/Resolving]
  - Headache [Unknown]
  - Asthenia [Unknown]
  - Pain in extremity [Recovering/Resolving]
  - Tenderness [Recovering/Resolving]
  - Musculoskeletal stiffness [Recovering/Resolving]
  - Pain [Recovering/Resolving]
